FAERS Safety Report 8158018-1 (Version None)
Quarter: 2012Q1

REPORT INFORMATION
  Report Type: 
  Country: None (occurrence: None)
  Receive Date: 20120222
  Receipt Date: 20120214
  Transmission Date: 20120608
  Serious: Yes (Hospitalization, Other)
  Sender: FDA-Public Use
  Company Number: PHHY2011JP88995

PATIENT
  Age: 59 Year
  Sex: Female

DRUGS (4)
  1. PHENYTOIN SODIUM CAP [Suspect]
     Indication: EPILEPSY
     Dosage: UNK UKN, UNK
     Route: 048
     Dates: start: 20101001, end: 20110404
  2. VALPROIC ACID [Concomitant]
     Indication: SIMPLE PARTIAL SEIZURES
     Dosage: UNK UKN, UNK
     Route: 048
  3. TEGRETOL [Suspect]
     Indication: EPILEPSY
     Dosage: UNK UKN, UNK
     Route: 048
     Dates: end: 20110301
  4. TEGRETOL [Suspect]
     Dosage: 600 MG, DAILY
     Route: 048
     Dates: start: 20110301, end: 20110404

REACTIONS (11)
  - ENCEPHALITIS [None]
  - DISEASE PROGRESSION [None]
  - PURPURA [None]
  - PALLOR [None]
  - EPILEPSY [None]
  - ERYTHEMA [None]
  - CEREBRAL ATROPHY [None]
  - DRUG RASH WITH EOSINOPHILIA AND SYSTEMIC SYMPTOMS [None]
  - STATUS EPILEPTICUS [None]
  - HEPATIC ENZYME INCREASED [None]
  - DYSKINESIA [None]
